FAERS Safety Report 19617332 (Version 1)
Quarter: 2021Q3

REPORT INFORMATION
  Report Type: Spontaneous
  Country: US (occurrence: US)
  Receive Date: 20210727
  Receipt Date: 20210727
  Transmission Date: 20211014
  Serious: No
  Sender: FDA-Public Use
  Company Number: US-ABBVIE-20K-163-3609524-00

PATIENT
  Sex: Female

DRUGS (1)
  1. SYNTHROID [Suspect]
     Active Substance: LEVOTHYROXINE SODIUM
     Indication: PRODUCT USED FOR UNKNOWN INDICATION
     Dosage: A FEW WEEKS
     Route: 048

REACTIONS (3)
  - Allergic sinusitis [Recovering/Resolving]
  - Rhinorrhoea [Recovering/Resolving]
  - Drug hypersensitivity [Recovering/Resolving]
